FAERS Safety Report 21449209 (Version 1)
Quarter: 2022Q4

REPORT INFORMATION
  Report Type: Spontaneous
  Country: IT (occurrence: IT)
  Receive Date: 20221013
  Receipt Date: 20221013
  Transmission Date: 20230113
  Serious: Yes (Hospitalization)
  Sender: FDA-Public Use
  Company Number: None

PATIENT
  Age: 54 Year
  Sex: Male
  Weight: 100 kg

DRUGS (12)
  1. CLONAZEPAM [Suspect]
     Active Substance: CLONAZEPAM
     Dosage: DROPS 1 VIAL/TOTAL.
     Route: 048
     Dates: start: 20220923, end: 20220923
  2. CLONAZEPAM [Suspect]
     Active Substance: CLONAZEPAM
  3. OLANZAPINE [Suspect]
     Active Substance: OLANZAPINE
     Dosage: 15 MG 1 BLISTER (ABOUT 10 TABLETS)
     Route: 048
     Dates: start: 20220923, end: 20220923
  4. LAMOTRIGINE [Concomitant]
     Active Substance: LAMOTRIGINE
  5. TEGRETOL [Concomitant]
     Active Substance: CARBAMAZEPINE
  6. EZETIMIBE [Concomitant]
     Active Substance: EZETIMIBE
  7. NIFEDIPINE [Concomitant]
     Active Substance: NIFEDIPINE
  8. INSULIN NOS [Concomitant]
     Active Substance: INSULIN NOS
  9. PANTOPRAZOLE [Concomitant]
     Active Substance: PANTOPRAZOLE
  10. METFORMIN [Concomitant]
     Active Substance: METFORMIN HYDROCHLORIDE
  11. ENALAPRIL [Concomitant]
     Active Substance: ENALAPRIL
  12. ATORVASTATIN [Concomitant]
     Active Substance: ATORVASTATIN

REACTIONS (2)
  - Sopor [Recovering/Resolving]
  - Drug abuse [Recovering/Resolving]

NARRATIVE: CASE EVENT DATE: 20220923
